FAERS Safety Report 24241931 (Version 4)
Quarter: 2024Q4

REPORT INFORMATION
  Report Type: Spontaneous
  Country: CH (occurrence: CH)
  Receive Date: 20240823
  Receipt Date: 20241014
  Transmission Date: 20250115
  Serious: Yes (Other)
  Sender: REGENERON
  Company Number: CH-BAYER-2024A119414

PATIENT
  Age: 83 Year
  Sex: Female

DRUGS (3)
  1. EYLEA HD [Suspect]
     Active Substance: AFLIBERCEPT
     Indication: Neovascular age-related macular degeneration
     Dosage: 8 MG, ONCE, FIRST INJECTION OF 8 MG IN LEFT EYE, SOLUTION FOR INJECTION, 114.3MG/ML
     Route: 031
     Dates: start: 20240708, end: 20240708
  2. EYLEA HD [Suspect]
     Active Substance: AFLIBERCEPT
     Indication: Diabetic retinal oedema
  3. SYFOVRE [Concomitant]
     Active Substance: PEGCETACOPLAN
     Indication: Neovascular age-related macular degeneration
     Dosage: 1 DF, ONCE, FIRST INJECTION OF SYFOVRE
     Route: 031
     Dates: start: 20240626, end: 20240626

REACTIONS (1)
  - Papilloedema [Recovered/Resolved]

NARRATIVE: CASE EVENT DATE: 20240812
